FAERS Safety Report 14246503 (Version 1)
Quarter: 2017Q4

REPORT INFORMATION
  Report Type: Spontaneous
  Country: IN (occurrence: IN)
  Receive Date: 20171204
  Receipt Date: 20171204
  Transmission Date: 20180321
  Serious: Yes (Death)
  Sender: FDA-Public Use
  Company Number: PHHY2017IN176605

PATIENT
  Age: 4 Year
  Sex: Female

DRUGS (1)
  1. METHOTREXATE. [Suspect]
     Active Substance: METHOTREXATE
     Indication: STILL^S DISEASE
     Route: 065

REACTIONS (7)
  - Hepatosplenomegaly [Fatal]
  - Pyrexia [Fatal]
  - Abdominal pain [Fatal]
  - Histiocytosis haematophagic [Fatal]
  - Lymphadenopathy [Fatal]
  - Pruritus [Fatal]
  - Lethargy [Fatal]
